FAERS Safety Report 13861164 (Version 1)
Quarter: 2017Q3

REPORT INFORMATION
  Report Type: Spontaneous
  Country: IT (occurrence: IT)
  Receive Date: 20170811
  Receipt Date: 20170811
  Transmission Date: 20171127
  Serious: Yes (Other)
  Sender: FDA-Public Use
  Company Number: IT-PFIZER INC-2017299722

PATIENT
  Age: 33 Year
  Sex: Female

DRUGS (5)
  1. SOLDESAM [Concomitant]
     Active Substance: DEXAMETHASONE
     Indication: HODGKIN^S DISEASE
     Dosage: UNK
     Dates: start: 20160621, end: 20160920
  2. ISOFOSFAMIDE [Concomitant]
     Indication: HODGKIN^S DISEASE
     Dosage: UNK
     Dates: start: 20160621, end: 20160920
  3. GEMCITABINE [Concomitant]
     Active Substance: GEMCITABINE\GEMCITABINE HYDROCHLORIDE
     Indication: HODGKIN^S DISEASE
     Dosage: UNK
     Dates: start: 20160621, end: 20160920
  4. VINORELBINE [Concomitant]
     Active Substance: VINORELBINE\VINORELBINE TARTRATE
     Indication: HODGKIN^S DISEASE
     Dosage: UNK
     Dates: start: 20160621, end: 20160920
  5. VANCOMYCIN HCL [Suspect]
     Active Substance: VANCOMYCIN HYDROCHLORIDE
     Indication: BREVIBACTERIUM INFECTION
     Dosage: UNK
     Dates: start: 2016

REACTIONS (5)
  - Chills [Recovering/Resolving]
  - Vomiting [Recovering/Resolving]
  - Drug ineffective for unapproved indication [Recovering/Resolving]
  - Rash erythematous [Recovering/Resolving]
  - Hyperpyrexia [Recovering/Resolving]

NARRATIVE: CASE EVENT DATE: 2016
